FAERS Safety Report 8284849-3 (Version None)
Quarter: 2012Q2

REPORT INFORMATION
  Report Type: 
  Country: None (occurrence: None)
  Receive Date: 20120413
  Receipt Date: 20110502
  Transmission Date: 20120825
  Serious: No
  Sender: FDA-Public Use
  Company Number: US-ASTRAZENECA-2011SE25214

PATIENT
  Sex: Female

DRUGS (1)
  1. NEXIUM [Suspect]
     Indication: GASTROOESOPHAGEAL REFLUX DISEASE
     Route: 048
     Dates: start: 20050101

REACTIONS (8)
  - HIATUS HERNIA [None]
  - IMMUNE SYSTEM DISORDER [None]
  - DRUG INEFFECTIVE [None]
  - STOMATITIS [None]
  - BURNING SENSATION [None]
  - TOOTHACHE [None]
  - FEELING ABNORMAL [None]
  - OSTEOARTHRITIS [None]
